FAERS Safety Report 6940302-8 (Version None)
Quarter: 2010Q3

REPORT INFORMATION
  Report Type: 
  Country: None (occurrence: None)
  Receive Date: 20100825
  Receipt Date: 20100816
  Transmission Date: 20110219
  Serious: Yes (Hospitalization, Other)
  Sender: FDA-Public Use
  Company Number: US-JNJFOC-20100707594

PATIENT
  Sex: Female
  Weight: 58.51 kg

DRUGS (7)
  1. ARESTIN [Suspect]
     Indication: GINGIVAL RECESSION
     Route: 004
  2. ARESTIN [Suspect]
     Route: 004
  3. ARESTIN [Suspect]
     Route: 004
  4. UNKNOWN MEDICATION [Concomitant]
     Indication: BLOOD PRESSURE
  5. SYNTHROID [Concomitant]
     Route: 065
  6. NORVASC [Concomitant]
     Route: 065
  7. LOSARTAN POTASSIUM [Concomitant]
     Route: 065

REACTIONS (4)
  - AUTOIMMUNE DISORDER [None]
  - CONTUSION [None]
  - PLATELET COUNT DECREASED [None]
  - RASH GENERALISED [None]
